FAERS Safety Report 18372847 (Version 3)
Quarter: 2020Q4

REPORT INFORMATION
  Report Type: Spontaneous
  Country: JP (occurrence: JP)
  Receive Date: 20201012
  Receipt Date: 20201116
  Transmission Date: 20210114
  Serious: Yes (Hospitalization, Other)
  Sender: FDA-Public Use
  Company Number: JP-PFIZER INC-2020386630

PATIENT
  Age: 51 Year
  Sex: Female
  Weight: 52 kg

DRUGS (6)
  1. NORVASC [Suspect]
     Active Substance: AMLODIPINE BESYLATE
     Indication: HYPERTENSION
     Dosage: UNK
     Route: 048
     Dates: start: 20200916, end: 20200916
  2. MYONAL [EPERISONE HYDROCHLORIDE] [Suspect]
     Active Substance: EPERISONE HYDROCHLORIDE
     Indication: MUSCLE TIGHTNESS
     Dosage: 150 MG, DAILY
     Route: 048
     Dates: start: 2020, end: 20200915
  3. BLOPRESS [Suspect]
     Active Substance: CANDESARTAN CILEXETIL
     Dosage: UNK
     Dates: end: 20200915
  4. BELSOMRA [Concomitant]
     Active Substance: SUVOREXANT
     Dosage: UNK
  5. JZOLOFT [Concomitant]
     Active Substance: SERTRALINE HYDROCHLORIDE
     Indication: PANIC DISORDER
     Dosage: UNK
  6. MYSLEE [Concomitant]
     Active Substance: ZOLPIDEM TARTRATE
     Dosage: UNK

REACTIONS (1)
  - Anaphylactic shock [Recovered/Resolved]

NARRATIVE: CASE EVENT DATE: 20200916
